FAERS Safety Report 14976943 (Version 1)
Quarter: 2018Q2

REPORT INFORMATION
  Report Type: Spontaneous
  Country: US (occurrence: US)
  Receive Date: 20180605
  Receipt Date: 20180605
  Transmission Date: 20180711
  Serious: No
  Sender: FDA-Public Use
  Company Number: US-ASTRAZENECA-2018SE61896

PATIENT
  Age: 44 Year
  Sex: Female
  Weight: 70.8 kg

DRUGS (1)
  1. IMFINZI [Suspect]
     Active Substance: DURVALUMAB
     Indication: TRIPLE NEGATIVE BREAST CANCER
     Route: 042
     Dates: start: 2017, end: 201712

REACTIONS (5)
  - Colitis [Not Recovered/Not Resolved]
  - Off label use [Unknown]
  - Parotid gland enlargement [Not Recovered/Not Resolved]
  - Sinus pain [Recovered/Resolved]
  - Product use in unapproved indication [Unknown]

NARRATIVE: CASE EVENT DATE: 2017
